FAERS Safety Report 8266235-5 (Version None)
Quarter: 2012Q2

REPORT INFORMATION
  Report Type: 
  Country: None (occurrence: None)
  Receive Date: 20120406
  Receipt Date: 20120330
  Transmission Date: 20120825
  Serious: Yes (Hospitalization)
  Sender: FDA-Public Use
  Company Number: NL-MEDIMMUNE-MEDI-0014085

PATIENT
  Sex: Female

DRUGS (13)
  1. POLYETHYLENE GLYCOL [Concomitant]
  2. PHENPROCOUMON [Concomitant]
     Route: 042
  3. ALBUTEROL SULFATE AUTOHALER [Concomitant]
     Route: 055
  4. FLUTICASONE PROPIONATE [Concomitant]
     Route: 055
  5. FUROSEMIDE [Concomitant]
  6. ENALAPRIL MALEATE [Concomitant]
  7. FLUCONAZOLE [Concomitant]
     Route: 048
  8. SYNAGIS [Suspect]
     Route: 030
     Dates: start: 20111108, end: 20111108
  9. OMEPRAZOLE SODIUM [Concomitant]
  10. SYNAGIS [Suspect]
     Route: 030
     Dates: start: 20111201, end: 20111201
  11. FERRO [Concomitant]
     Dates: end: 20111208
  12. DOMPERIDONE MALEATE [Concomitant]
  13. COTRIM [Concomitant]
     Dates: end: 20111208

REACTIONS (4)
  - MEDICAL DEVICE CHANGE [None]
  - INCISION SITE INFECTION [None]
  - CATHETER SITE DISCHARGE [None]
  - PAIN [None]
